FAERS Safety Report 10755790 (Version 1)
Quarter: 2015Q1

REPORT INFORMATION
  Report Type: Spontaneous
  Country: FR (occurrence: FR)
  Receive Date: 20150202
  Receipt Date: 20150202
  Transmission Date: 20150721
  Serious: Yes (Hospitalization)
  Sender: FDA-Public Use
  Company Number: FR-BAYER-2015-012932

PATIENT
  Age: 91 Year
  Sex: Male

DRUGS (8)
  1. ASPIRINE PROTECT [Suspect]
     Active Substance: ASPIRIN
     Indication: PRODUCT USED FOR UNKNOWN INDICATION
     Dosage: 325 MG, UNK (FOR MORE THAN ONE YEAR)
     Route: 048
  2. DOLIPRANE [Concomitant]
     Active Substance: ACETAMINOPHEN
     Indication: BRONCHITIS
     Dosage: UNK
     Route: 048
     Dates: start: 20060425
  3. FORLAX [Concomitant]
     Active Substance: POLYETHYLENE GLYCOL 4000
  4. CELESTONE [Suspect]
     Active Substance: BETAMETHASONE
     Indication: BRONCHITIS
     Dosage: 6 MG, UNK
     Route: 048
  5. KETEK [Concomitant]
     Active Substance: TELITHROMYCIN
     Indication: BRONCHITIS
     Dosage: 800 MG, QD
     Route: 048
     Dates: start: 20060425
  6. ALUMINIUM HYDROXIDE-MAGNESIUM CARBONATE GEL [Concomitant]
  7. PNEUMOREL [Concomitant]
     Active Substance: FENSPIRIDE HYDROCHLORIDE
     Indication: BRONCHITIS
     Dosage: UNK
     Route: 048
     Dates: start: 20060425
  8. GLYCINE MAX [Concomitant]
     Indication: OSTEOARTHRITIS
     Dosage: 1 DF, QD
     Route: 048

REACTIONS (6)
  - Abdominal pain [None]
  - Vomiting [None]
  - Hiatus hernia [None]
  - Diverticulum intestinal haemorrhagic [None]
  - Diarrhoea [None]
  - Rectal haemorrhage [Recovered/Resolved]

NARRATIVE: CASE EVENT DATE: 20060422
